FAERS Safety Report 8180099-X (Version None)
Quarter: 2012Q1

REPORT INFORMATION
  Report Type: 
  Country: None (occurrence: None)
  Receive Date: 20120302
  Receipt Date: 20120302
  Transmission Date: 20120608
  Serious: Yes (Other)
  Sender: FDA-Public Use
  Company Number: None

PATIENT
  Age: 60 Year
  Sex: Female
  Weight: 56.699 kg

DRUGS (1)
  1. GABAPENTIN [Suspect]
     Indication: SCIATICA
     Dosage: 300MG
     Route: 048
     Dates: start: 20120124, end: 20120217

REACTIONS (11)
  - NAUSEA [None]
  - DEPRESSION [None]
  - SUICIDAL IDEATION [None]
  - DECREASED INTEREST [None]
  - DECREASED APPETITE [None]
  - FEAR [None]
  - IRRITABILITY [None]
  - FEELING OF DESPAIR [None]
  - CHILLS [None]
  - INSOMNIA [None]
  - CRYING [None]
